FAERS Safety Report 8351922-0 (Version None)
Quarter: 2012Q2

REPORT INFORMATION
  Report Type: 
  Country: None (occurrence: None)
  Receive Date: 20120511
  Receipt Date: 20120508
  Transmission Date: 20120825
  Serious: Yes (Other)
  Sender: FDA-Public Use
  Company Number: US-PFIZER INC-2012098011

PATIENT
  Sex: Female

DRUGS (5)
  1. GABAPENTIN [Suspect]
     Indication: MUSCULOSKELETAL PAIN
     Dosage: UNKNOWN DOSE TWO TIMES A DAY
     Dates: start: 20120305
  2. FLUTICASONE [Concomitant]
     Dosage: UNK
     Route: 045
  3. SIMVASTATIN [Concomitant]
     Dosage: 40 MG
  4. GABAPENTIN [Suspect]
     Indication: PAIN
  5. BENADRYL [Concomitant]
     Dosage: UNK

REACTIONS (4)
  - DYSPNOEA [None]
  - PAIN [None]
  - CEREBROVASCULAR ACCIDENT [None]
  - MUSCULOSKELETAL PAIN [None]
